FAERS Safety Report 9355194 (Version 1)
Quarter: 2013Q2

REPORT INFORMATION
  Report Type: Spontaneous
  Country: US (occurrence: None)
  Receive Date: 20130618
  Receipt Date: 20130618
  Transmission Date: 20140414
  Serious: No
  Sender: FDA-Public Use
  Company Number: None

PATIENT
  Age: 71 Year
  Sex: Male
  Weight: 92.99 kg

DRUGS (12)
  1. COMBIGAN [Suspect]
     Indication: GLAUCOMA
     Dosage: ONE DROP IN EYE
     Dates: start: 20130103, end: 20130528
  2. LEVOTHYROXIN [Concomitant]
  3. SIMVASTATIN [Concomitant]
  4. TRAVATAN Z [Concomitant]
  5. RESTASIS [Concomitant]
  6. EYE MAX VITAMINS [Concomitant]
  7. GRAPE SEED EXTRACT [Concomitant]
  8. SAW PALMENTO [Concomitant]
  9. TUMERIC [Concomitant]
  10. CA CHEWS [Concomitant]
  11. FISH OIL [Concomitant]
  12. COQ10 [Concomitant]

REACTIONS (2)
  - Mydriasis [None]
  - Vision blurred [None]
